FAERS Safety Report 8463868 (Version 16)
Quarter: 2014Q4

REPORT INFORMATION
  Report Type: Report from Study
  Country: CA (occurrence: CA)
  Receive Date: 20120316
  Receipt Date: 20141013
  Transmission Date: 20150529
  Serious: Yes (Death, Hospitalization, Other)
  Sender: FDA-Public Use
  Company Number: PHHY2010CA28501

PATIENT
  Age: 61 Year
  Sex: Female

DRUGS (3)
  1. CORTICOSTEROIDS [Concomitant]
     Active Substance: CORTICOSTEROID NOS
     Indication: PRODUCT USED FOR UNKNOWN INDICATION
     Dosage: UNK UKN, UNK
     Route: 065
  2. SANDOSTATIN LAR DEPOT [Suspect]
     Active Substance: OCTREOTIDE ACETATE
     Indication: SMALL INTESTINE CARCINOMA
     Dosage: 20 MG, EVERY 4 WEEKS
     Route: 030
     Dates: start: 20091001
  3. SANDOSTATIN LAR DEPOT [Suspect]
     Active Substance: OCTREOTIDE ACETATE
     Dosage: 30 MG, EVERY 4 WEEKS
     Route: 030
     Dates: end: 20141001

REACTIONS (31)
  - Hepatic neoplasm [Unknown]
  - Blister [Recovering/Resolving]
  - Weight decreased [Unknown]
  - Fluid intake reduced [Unknown]
  - General physical health deterioration [Unknown]
  - Fatigue [Unknown]
  - Pollakiuria [Unknown]
  - Pallor [Unknown]
  - Heart rate decreased [Unknown]
  - Cerebrovascular accident [Unknown]
  - Diarrhoea [Unknown]
  - Confusional state [Unknown]
  - Urinary tract infection [Unknown]
  - Hypophagia [Unknown]
  - Dysgeusia [Unknown]
  - Musculoskeletal pain [Unknown]
  - Death [Fatal]
  - Fall [Unknown]
  - Haemoglobin decreased [Unknown]
  - Abdominal discomfort [Unknown]
  - Blood glucose increased [Unknown]
  - Dehydration [Unknown]
  - Productive cough [Unknown]
  - Thirst [Unknown]
  - Pain in extremity [Unknown]
  - Asthenia [Unknown]
  - Metastases to central nervous system [Unknown]
  - Herpes zoster [Recovering/Resolving]
  - Rib fracture [Unknown]
  - Myalgia [Unknown]
  - Back pain [Not Recovered/Not Resolved]

NARRATIVE: CASE EVENT DATE: 20130703
